FAERS Safety Report 9606420 (Version 1)
Quarter: 2013Q4

REPORT INFORMATION
  Report Type: Spontaneous
  Country: US (occurrence: US)
  Receive Date: 20131008
  Receipt Date: 20131008
  Transmission Date: 20140711
  Serious: No
  Sender: FDA-Public Use
  Company Number: US-AMGEN-USASP2013051151

PATIENT
  Age: 64 Year
  Sex: Male

DRUGS (4)
  1. PROLIA [Suspect]
     Indication: PRODUCT USED FOR UNKNOWN INDICATION
  2. ARIMIDEX [Concomitant]
  3. SIMVASTATIN [Concomitant]
  4. ATENOLOL [Concomitant]

REACTIONS (2)
  - Ear discomfort [Unknown]
  - Ear disorder [Unknown]
